FAERS Safety Report 14288007 (Version 1)
Quarter: 2017Q4

REPORT INFORMATION
  Report Type: Spontaneous
  Country: US (occurrence: US)
  Receive Date: 20171214
  Receipt Date: 20171214
  Transmission Date: 20180321
  Serious: No
  Sender: FDA-Public Use
  Company Number: US-PERRIGO-17US025607

PATIENT
  Age: 85 Year
  Sex: Male
  Weight: 79.82 kg

DRUGS (2)
  1. TAMSULOSIN [Concomitant]
     Active Substance: TAMSULOSIN
     Indication: PROSTATOMEGALY
     Dosage: 0.4MG
     Route: 065
     Dates: start: 201706
  2. BACITRACIN. [Suspect]
     Active Substance: BACITRACIN
     Indication: EYELID INFECTION
     Dosage: SMALL AMOUNT, SINGLE
     Route: 047
     Dates: start: 20170728, end: 20170728

REACTIONS (1)
  - Eye swelling [Recovering/Resolving]

NARRATIVE: CASE EVENT DATE: 20170729
